FAERS Safety Report 6698714-6 (Version None)
Quarter: 2010Q2

REPORT INFORMATION
  Report Type: 
  Country: None (occurrence: None)
  Receive Date: 20100427
  Receipt Date: 20081224
  Transmission Date: 20101027
  Serious: Yes (Other)
  Sender: FDA-Public Use
  Company Number: US-ASTRAZENECA-2008UW24476

PATIENT
  Age: 48 Year
  Sex: Female
  Weight: 86.2 kg

DRUGS (3)
  1. ZOMIG [Suspect]
     Indication: MIGRAINE
     Route: 045
     Dates: start: 20080501
  2. ZOMIG [Suspect]
     Route: 045
     Dates: start: 20081109
  3. GABAPENTIN [Concomitant]

REACTIONS (5)
  - CHEST PAIN [None]
  - CHILLS [None]
  - DRUG INEFFECTIVE [None]
  - DYSPNOEA [None]
  - TREMOR [None]
